FAERS Safety Report 15132637 (Version 1)
Quarter: 2018Q3

REPORT INFORMATION
  Report Type: Spontaneous
  Country: DE (occurrence: NL)
  Receive Date: 20180712
  Receipt Date: 20180712
  Transmission Date: 20181010
  Serious: Yes (Other)
  Sender: FDA-Public Use
  Company Number: NL-TEVA-2018-NL-924058

PATIENT
  Age: 92 Year
  Sex: Male

DRUGS (1)
  1. AMOXICILLIN + CLAVULANIC ACID TABLET [Suspect]
     Active Substance: AMOXICILLIN\CLAVULANIC ACID
     Indication: PNEUMONIA
     Dosage: 9 DOSAGE FORMS DAILY; 1 DF (500/125 MG),
     Route: 048
     Dates: start: 20180228, end: 20180311

REACTIONS (2)
  - Diarrhoea [Unknown]
  - Faeces discoloured [Unknown]
